FAERS Safety Report 6224385-9 (Version None)
Quarter: 2009Q2

REPORT INFORMATION
  Report Type: 
  Country: None (occurrence: None)
  Receive Date: 20090612
  Receipt Date: 20090316
  Transmission Date: 20091009
  Serious: No
  Sender: FDA-Public Use
  Company Number: US-ABBOTT-09P-163-0563296-00

PATIENT
  Sex: Female
  Weight: 100.33 kg

DRUGS (4)
  1. HUMIRA [Suspect]
     Indication: PSORIASIS
     Route: 058
     Dates: start: 20090224
  2. HYDROCHLOROTHIAZIDE [Suspect]
     Indication: HYPERTENSION
     Dates: end: 20090201
  3. ATENOLOL [Concomitant]
     Indication: HYPERTENSION
  4. VICODIN [Concomitant]
     Indication: PAIN
     Dates: start: 20090302

REACTIONS (4)
  - BLOOD PRESSURE DECREASED [None]
  - DIZZINESS [None]
  - PRURITUS [None]
  - PSORIASIS [None]
